FAERS Safety Report 8494229-3 (Version None)
Quarter: 2012Q2

REPORT INFORMATION
  Report Type: 
  Country: None (occurrence: None)
  Receive Date: 20120628
  Receipt Date: 20120619
  Transmission Date: 20120825
  Serious: Yes (Hospitalization)
  Sender: FDA-Public Use
  Company Number: AUR-APL-2012-02733

PATIENT
  Age: 77 Year
  Sex: Female

DRUGS (7)
  1. TEMAZEPAM [Concomitant]
  2. SENNOSIDES (SENNOSIDE A+B) [Concomitant]
  3. OXYCODONE HCL [Suspect]
     Indication: CANCER PAIN
     Dosage: 100 MG (50 MG,2 IN 1 D) ; (5 MG,WHEN REQUIRED)
  4. CITALOPRAM HYDROBROMIDE [Suspect]
     Indication: PRODUCT USED FOR UNKNOWN INDICATION
     Dosage: 20 MG (20 MG,1 IN 1 D)
  5. DIAZEPAM [Concomitant]
  6. ESOMEPRAZOLE MAGNESIUM [Suspect]
     Indication: PRODUCT USED FOR UNKNOWN INDICATION
     Dosage: 80 MG (40 MG,2 IN 1 D)
  7. DOCUSATE (DOCUSATE) [Concomitant]

REACTIONS (2)
  - DRUG INTERACTION [None]
  - SEROTONIN SYNDROME [None]
